FAERS Safety Report 7201587-6 (Version None)
Quarter: 2010Q4

REPORT INFORMATION
  Report Type: 
  Country: None (occurrence: None)
  Receive Date: 20101229
  Receipt Date: 20101221
  Transmission Date: 20110411
  Serious: Yes (Death)
  Sender: FDA-Public Use
  Company Number: US-GILEAD-2010-0029937

PATIENT
  Sex: Female
  Weight: 41.768 kg

DRUGS (12)
  1. LETAIRIS [Suspect]
     Indication: PULMONARY ARTERIAL HYPERTENSION
     Route: 048
     Dates: start: 20100303
  2. PANTOPRAZOLE [Concomitant]
  3. LASIX [Concomitant]
  4. TYLENOL W/ CODEINE [Concomitant]
  5. PROVENTIL [Concomitant]
  6. ALENDRONATE SODIUM [Concomitant]
  7. PRAVASTATIN [Concomitant]
  8. METOPROLOL TARTRATE [Concomitant]
  9. FLUOXETINE [Concomitant]
  10. MULTI-VITAMIN [Concomitant]
  11. SPIRIVA [Concomitant]
  12. LEVOTHYROXINE [Concomitant]

REACTIONS (1)
  - DEATH [None]
